FAERS Safety Report 7457532-1 (Version None)
Quarter: 2011Q2

REPORT INFORMATION
  Report Type: 
  Country: None (occurrence: None)
  Receive Date: 20110504
  Receipt Date: 20110428
  Transmission Date: 20111010
  Serious: Yes (Other)
  Sender: FDA-Public Use
  Company Number: IN-BRISTOL-MYERS SQUIBB COMPANY-15698467

PATIENT
  Age: 14 Year
  Sex: Male

DRUGS (4)
  1. VINBLASTINE [Suspect]
     Indication: HODGKIN'S DISEASE
     Dates: end: 20050615
  2. DACARBAZINE [Suspect]
     Indication: HODGKIN'S DISEASE
     Dates: end: 20050615
  3. BLEOMYCIN SULFATE [Suspect]
     Indication: HODGKIN'S DISEASE
     Dates: end: 20050615
  4. ADRIAMYCIN PFS [Suspect]
     Indication: HODGKIN'S DISEASE
     Dates: end: 20050615

REACTIONS (1)
  - BONE SARCOMA [None]
